FAERS Safety Report 14088386 (Version 11)
Quarter: 2020Q1

REPORT INFORMATION
  Report Type: Report from Study
  Country: US (occurrence: US)
  Receive Date: 20171013
  Receipt Date: 20200317
  Transmission Date: 20200409
  Serious: Yes (Other)
  Sender: FDA-Public Use
  Company Number: US-ACTELION-A-US2017-160082

PATIENT
  Age: 58 Year
  Sex: Female
  Weight: 99.77 kg

DRUGS (9)
  1. VELETRI [Suspect]
     Active Substance: EPOPROSTENOL
     Indication: PULMONARY ARTERIAL HYPERTENSION
     Dosage: 36 NG/KG, PER MIN
     Route: 042
  2. VELETRI [Suspect]
     Active Substance: EPOPROSTENOL
     Dosage: 8 NG/KG, PER MIN
     Route: 042
  3. SODIUM CHLORIDE. [Concomitant]
     Active Substance: SODIUM CHLORIDE
  4. VELETRI [Suspect]
     Active Substance: EPOPROSTENOL
     Dosage: 24 NG/KG, PER MIN
     Route: 042
  5. VELETRI [Suspect]
     Active Substance: EPOPROSTENOL
     Dosage: 26 NG/KG, PER MIN
     Route: 042
  6. VELETRI [Suspect]
     Active Substance: EPOPROSTENOL
     Dosage: 22 NG/KG, PER MIN
     Route: 042
  7. VELETRI [Suspect]
     Active Substance: EPOPROSTENOL
     Dosage: 50 NG/KG, PER MIN
     Route: 042
  8. SILDENAFIL CITRATE. [Concomitant]
     Active Substance: SILDENAFIL CITRATE
  9. VELETRI [Suspect]
     Active Substance: EPOPROSTENOL
     Dosage: 52 NG/KG, PER MIN
     Route: 042

REACTIONS (24)
  - Insomnia [Unknown]
  - Device malfunction [Unknown]
  - Fatigue [Unknown]
  - Palpitations [Unknown]
  - Condition aggravated [Recovering/Resolving]
  - Adverse drug reaction [Unknown]
  - Nasal congestion [Unknown]
  - Swelling [Unknown]
  - Nasopharyngitis [Unknown]
  - Stress [Unknown]
  - Malaise [Unknown]
  - Dyspnoea exertional [Unknown]
  - Chest pain [Unknown]
  - Myalgia [Unknown]
  - Headache [Unknown]
  - Neuralgia [Unknown]
  - Pain in jaw [Unknown]
  - Catheter site scab [Unknown]
  - Neuropathy peripheral [Unknown]
  - Pollakiuria [Unknown]
  - Pulmonary hypertension [Unknown]
  - Upper-airway cough syndrome [Unknown]
  - Device occlusion [Unknown]
  - Anxiety [Unknown]

NARRATIVE: CASE EVENT DATE: 20191223
